FAERS Safety Report 6364438-8 (Version None)
Quarter: 2009Q3

REPORT INFORMATION
  Report Type: 
  Country: None (occurrence: None)
  Receive Date: 20090919
  Receipt Date: 20090722
  Transmission Date: 20100115
  Serious: Yes (Hospitalization)
  Sender: FDA-Public Use
  Company Number: US-ABBOTT-09P-163-0587140-00

PATIENT
  Sex: Female
  Weight: 86.26 kg

DRUGS (3)
  1. HUMIRA [Suspect]
     Indication: RHEUMATOID ARTHRITIS
     Dosage: PEN- EVERY OTHER WEEK
     Route: 058
     Dates: start: 20070722, end: 20070822
  2. HUMIRA [Suspect]
     Dosage: PRE-FILLED SYRINGE- EVERY OTHER WEEK
     Dates: start: 20070822, end: 20080101
  3. HUMIRA [Suspect]
     Dates: start: 20090225

REACTIONS (10)
  - ARTHROPATHY [None]
  - DEHYDRATION [None]
  - EXOSTOSIS [None]
  - GAIT DISTURBANCE [None]
  - INJECTION SITE PAIN [None]
  - JOINT SWELLING [None]
  - PAIN IN EXTREMITY [None]
  - PNEUMONIA [None]
  - PYREXIA [None]
  - WEIGHT INCREASED [None]
